FAERS Safety Report 6253455-4 (Version None)
Quarter: 2009Q3

REPORT INFORMATION
  Report Type: 
  Country: None (occurrence: None)
  Receive Date: 20090701
  Receipt Date: 20090621
  Transmission Date: 20100115
  Serious: Yes (Life-Threatening, Hospitalization)
  Sender: FDA-Public Use
  Company Number: JP-MYLANLABS-2009S1009009

PATIENT
  Age: 68 Year
  Sex: Male

DRUGS (2)
  1. PACLITAXEL [Suspect]
     Indication: LUNG NEOPLASM MALIGNANT
  2. CARBOPLATIN [Suspect]
     Indication: LUNG NEOPLASM MALIGNANT

REACTIONS (1)
  - ACUTE RESPIRATORY DISTRESS SYNDROME [None]
